FAERS Safety Report 18735177 (Version 1)
Quarter: 2021Q1

REPORT INFORMATION
  Report Type: Spontaneous
  Country: US (occurrence: US)
  Receive Date: 20210112
  Receipt Date: 20210112
  Transmission Date: 20210419
  Serious: Yes (Hospitalization)
  Sender: FDA-Public Use
  Company Number: None

PATIENT
  Age: 79 Year
  Sex: Male
  Weight: 63.96 kg

DRUGS (1)
  1. DENOSUMAB (DENOSUMAB 120MG/1.7ML INJ) [Suspect]
     Active Substance: DENOSUMAB
     Indication: BONE CANCER
     Dosage: ?          OTHER STRENGTH:120/1.7 MG/ML;?
     Route: 058
     Dates: start: 20170808, end: 20171222

REACTIONS (1)
  - Hypocalcaemia [None]

NARRATIVE: CASE EVENT DATE: 20171222
